FAERS Safety Report 6199037-4 (Version None)
Quarter: 2009Q2

REPORT INFORMATION
  Report Type: 
  Country: None (occurrence: None)
  Receive Date: 20090520
  Receipt Date: 20090520
  Transmission Date: 20091009
  Serious: Yes (Other)
  Sender: FDA-Public Use
  Company Number: None

PATIENT
  Age: 64 Year
  Sex: Female
  Weight: 74.8435 kg

DRUGS (1)
  1. VFEND [Suspect]
     Indication: OSTEOMYELITIS FUNGAL
     Dosage: 400MG AM AND PM IV DRIP
     Route: 041
     Dates: start: 20090201, end: 20090519

REACTIONS (7)
  - AFFECTIVE DISORDER [None]
  - ANXIETY [None]
  - DEPRESSION [None]
  - EMOTIONAL DISORDER [None]
  - PRODUCT CONTAINER ISSUE [None]
  - PRODUCT CONTAMINATION [None]
  - SUICIDAL IDEATION [None]
